FAERS Safety Report 4648511-8 (Version None)
Quarter: 2005Q2

REPORT INFORMATION
  Report Type: 
  Country: None (occurrence: None)
  Receive Date: 20050429
  Receipt Date: 20050131
  Transmission Date: 20051028
  Serious: Yes (Death, Other)
  Sender: FDA-Public Use
  Company Number: US-BRISTOL-MYERS SQUIBB COMPANY-12847935

PATIENT
  Age: 75 Year
  Sex: Female

DRUGS (5)
  1. COUMADIN [Suspect]
     Indication: ATRIAL FIBRILLATION
     Route: 048
     Dates: start: 20000821, end: 20020227
  2. LOTENSIN [Concomitant]
  3. TOPROL-XL [Concomitant]
  4. INDAPAMIDE [Concomitant]
  5. MIACALCIN [Concomitant]

REACTIONS (2)
  - CEREBRAL HAEMORRHAGE [None]
  - HYPERSENSITIVITY [None]
